FAERS Safety Report 5105322-7 (Version None)
Quarter: 2006Q3

REPORT INFORMATION
  Report Type: 
  Country: None (occurrence: None)
  Receive Date: 20060915
  Receipt Date: 20050913
  Transmission Date: 20061208
  Serious: Yes (Other)
  Sender: FDA-Public Use
  Company Number: CA-SP-2005-01809

PATIENT
  Age: 81 Year
  Sex: Male

DRUGS (5)
  1. TUBERSOL [Suspect]
     Route: 065
  2. BCG  THERAPEUTICS [Suspect]
     Indication: BLADDER CANCER
     Route: 043
     Dates: end: 20041101
  3. BCG  THERAPEUTICS [Suspect]
     Route: 043
     Dates: end: 20041101
  4. COUMADIN [Concomitant]
  5. DIGOXIN [Concomitant]

REACTIONS (6)
  - INFECTION [None]
  - PAIN [None]
  - SWELLING [None]
  - TESTICULAR MASS [None]
  - TUBERCULOSIS [None]
  - TUBERCULOSIS SKIN TEST POSITIVE [None]
